FAERS Safety Report 13915234 (Version 2)
Quarter: 2017Q3

REPORT INFORMATION
  Report Type: Spontaneous
  Country: US (occurrence: US)
  Receive Date: 20170829
  Receipt Date: 20170908
  Transmission Date: 20171127
  Serious: No
  Sender: FDA-Public Use
  Company Number: US-VERTEX PHARMACEUTICALS-2017-004682

PATIENT
  Age: 22 Year
  Sex: Female

DRUGS (17)
  1. RESTASIS [Concomitant]
     Active Substance: CYCLOSPORINE
  2. ATORVASTATIN [Concomitant]
     Active Substance: ATORVASTATIN
  3. DULOXETINE. [Concomitant]
     Active Substance: DULOXETINE
  4. GABAPENTIN. [Concomitant]
     Active Substance: GABAPENTIN
  5. ONDANSETRON [Concomitant]
     Active Substance: ONDANSETRON
  6. METHOTREXATE. [Concomitant]
     Active Substance: METHOTREXATE
  7. ORKAMBI [Suspect]
     Active Substance: IVACAFTOR\LUMACAFTOR
     Indication: CYSTIC FIBROSIS
     Dosage: 2 TABS (200/125MG EACH), BID
     Route: 048
     Dates: start: 20170209
  8. FURSEMIDE [Concomitant]
     Active Substance: FUROSEMIDE
  9. HYDROCO [Concomitant]
  10. OMEPRAZOLE. [Concomitant]
     Active Substance: OMEPRAZOLE
  11. TERBINAFINE. [Concomitant]
     Active Substance: TERBINAFINE
  12. PREDNISONE. [Concomitant]
     Active Substance: PREDNISONE
  13. PENICILLIN [Concomitant]
     Active Substance: PENICILLIN
  14. TRAMADOL. [Concomitant]
     Active Substance: TRAMADOL
  15. CIPROFLOXACIN. [Concomitant]
     Active Substance: CIPROFLOXACIN
  16. METRONIDAZOLE. [Concomitant]
     Active Substance: METRONIDAZOLE
  17. LEVOTHYROXIN [Concomitant]
     Active Substance: LEVOTHYROXINE

REACTIONS (2)
  - Dyspnoea [Not Recovered/Not Resolved]
  - Cough [Not Recovered/Not Resolved]

NARRATIVE: CASE EVENT DATE: 201708
